FAERS Safety Report 8577571-7 (Version None)
Quarter: 2012Q3

REPORT INFORMATION
  Report Type: 
  Country: None (occurrence: None)
  Receive Date: 20120807
  Receipt Date: 20111122
  Transmission Date: 20120928
  Serious: No
  Sender: FDA-Public Use
  Company Number: US-ASTRAZENECA-2011SE71149

PATIENT
  Age: 61 Year
  Sex: Female

DRUGS (1)
  1. SEROQUEL [Suspect]
     Route: 048

REACTIONS (6)
  - PANIC DISORDER [None]
  - DRUG DISPENSING ERROR [None]
  - INSOMNIA [None]
  - BIPOLAR DISORDER [None]
  - PANIC ATTACK [None]
  - ANXIETY [None]
